FAERS Safety Report 5153089-9 (Version None)
Quarter: 2006Q4

REPORT INFORMATION
  Report Type: 
  Country: None (occurrence: None)
  Receive Date: 20061114
  Receipt Date: 20061114
  Transmission Date: 20070319
  Serious: No
  Sender: FDA-Public Use
  Company Number: None

PATIENT
  Age: 40 Year
  Sex: Female

DRUGS (2)
  1. RELAFEN [Suspect]
     Dosage: TABLET   TIGHT, LIGHT CHILD RESISTANT CONTAINER 100'S
  2. REGLAN [Suspect]
     Dosage: TABLET  TIGHT, LIGHT RESISTANT CONTAINER 100'S

REACTIONS (2)
  - DRUG DISPENSING ERROR [None]
  - MEDICATION ERROR [None]
